FAERS Safety Report 15247385 (Version 4)
Quarter: 2019Q1

REPORT INFORMATION
  Report Type: Report from Study
  Country: None (occurrence: US)
  Receive Date: 20180807
  Receipt Date: 20190226
  Transmission Date: 20190417
  Serious: Yes (Other)
  Sender: FDA-Public Use
  Company Number: US-ABBVIE-17K-163-1957707-00

PATIENT
  Age: 63 Year
  Sex: Female

DRUGS (5)
  1. HUMIRA [Suspect]
     Active Substance: ADALIMUMAB
     Indication: CROHN^S DISEASE
     Dosage: DAY 1
     Route: 058
     Dates: start: 20170407, end: 20170407
  2. HUMIRA [Suspect]
     Active Substance: ADALIMUMAB
     Dosage: DAY 15
     Route: 058
     Dates: start: 20170421, end: 20170421
  3. HUMIRA [Suspect]
     Active Substance: ADALIMUMAB
     Dosage: DAY 29
     Route: 058
     Dates: start: 20170505, end: 20170505
  4. HUMIRA [Suspect]
     Active Substance: ADALIMUMAB
     Route: 058
  5. HUMIRA [Suspect]
     Active Substance: ADALIMUMAB
     Route: 058
     Dates: start: 20170513, end: 2018

REACTIONS (26)
  - Eyelid ptosis [Recovered/Resolved]
  - Cataract [Recovered/Resolved]
  - Dyschezia [Unknown]
  - Diabetes mellitus [Not Recovered/Not Resolved]
  - Fall [Recovered/Resolved]
  - Hypertension [Not Recovered/Not Resolved]
  - Cardiac pacemaker insertion [Not Recovered/Not Resolved]
  - Lip injury [Recovered/Resolved]
  - Pyrexia [Unknown]
  - Arthralgia [Recovered/Resolved]
  - Back pain [Recovered/Resolved]
  - Constipation [Recovered/Resolved]
  - Malaise [Recovered/Resolved]
  - Depression [Unknown]
  - Vomiting [Unknown]
  - Contusion [Recovered/Resolved]
  - Diarrhoea [Not Recovered/Not Resolved]
  - Ligament sprain [Recovered/Resolved]
  - Eyelid cyst [Not Recovered/Not Resolved]
  - Constipation [Recovering/Resolving]
  - Abdominal pain [Recovered/Resolved]
  - Abdominal discomfort [Unknown]
  - Loss of personal independence in daily activities [Unknown]
  - Nausea [Recovered/Resolved]
  - Nausea [Recovered/Resolved]
  - Adverse event [Unknown]

NARRATIVE: CASE EVENT DATE: 2017
